FAERS Safety Report 9034585 (Version 1)
Quarter: 2013Q1

REPORT INFORMATION
  Report Type: Spontaneous
  Country: DK (occurrence: None)
  Receive Date: 20130118
  Receipt Date: 20130118
  Transmission Date: 20140127
  Serious: Yes (Hospitalization)
  Sender: FDA-Public Use
  Company Number: 2013MA000486

PATIENT
  Age: 71 Year
  Sex: Female

DRUGS (8)
  1. ALPRAZOLAM TABLETS USP, 2 MG (PUREPAC) (ALPRAZOLAM) [Suspect]
     Indication: DEPRESSION
     Route: 048
     Dates: start: 20080101, end: 20121122
  2. LAMICTAL (NO PREF. NAME) [Suspect]
     Indication: BIPOLAR DISORDER
     Dosage: 1 DF
     Route: 048
     Dates: start: 20080101, end: 20121122
  3. FEVARIN (FLUVOXAMINE MALEATE) [Suspect]
     Indication: DEPRESSION
     Dosage: 0.5 DF
     Route: 048
     Dates: start: 20110101, end: 20121122
  4. ANAFRANIL (CLOMIPRAMINE HYDROCHLORIDE) [Suspect]
     Indication: BIPOLAR DISORDER
     Dosage: 1 DF
     Route: 048
     Dates: start: 20121022, end: 20121122
  5. PROVISACOR [Concomitant]
  6. CARDIOASPIRIN [Concomitant]
  7. METFORMIN [Concomitant]
  8. ARIPIPRAZOLE [Concomitant]

REACTIONS (4)
  - Muscle rigidity [None]
  - Tremor [None]
  - Drug level increased [None]
  - Drug interaction [None]
